FAERS Safety Report 8454709-3 (Version None)
Quarter: 2012Q2

REPORT INFORMATION
  Report Type: 
  Country: None (occurrence: None)
  Receive Date: 20120621
  Receipt Date: 20120516
  Transmission Date: 20120825
  Serious: No
  Sender: FDA-Public Use
  Company Number: US-BAYER-2012-051919

PATIENT
  Age: 67 Year
  Sex: Male
  Weight: 70 kg

DRUGS (2)
  1. DOMEBORO [Suspect]
     Dosage: 1 DF, QID
  2. INSULIN [Concomitant]

REACTIONS (1)
  - NO ADVERSE EVENT [None]
